FAERS Safety Report 17270396 (Version 1)
Quarter: 2020Q1

REPORT INFORMATION
  Report Type: Spontaneous
  Country: FR (occurrence: FR)
  Receive Date: 20200114
  Receipt Date: 20200114
  Transmission Date: 20200409
  Serious: Yes (Other)
  Sender: FDA-Public Use
  Company Number: FR-MYLANLABS-2020M1003848

PATIENT
  Age: 19 Year
  Sex: Female

DRUGS (2)
  1. NUROFENFLASH [Interacting]
     Active Substance: IBUPROFEN LYSINE
     Indication: PAIN IN EXTREMITY
     Dosage: 2 DOSAGE FORM, QD
     Route: 048
     Dates: start: 20190923, end: 20190927
  2. KETOPROFEN. [Suspect]
     Active Substance: KETOPROFEN
     Indication: PAIN IN EXTREMITY
     Dosage: 2 DOSAGE FORM, QD
     Route: 048
     Dates: start: 20190923, end: 20190927

REACTIONS (2)
  - Drug interaction [Recovered/Resolved]
  - Abdominal pain lower [Recovered/Resolved]

NARRATIVE: CASE EVENT DATE: 20190923
